FAERS Safety Report 7329130-1 (Version None)
Quarter: 2011Q1

REPORT INFORMATION
  Report Type: 
  Country: None (occurrence: None)
  Receive Date: 20110303
  Receipt Date: 20110207
  Transmission Date: 20110831
  Serious: Yes (Hospitalization)
  Sender: FDA-Public Use
  Company Number: US-ASTRAZENECA-2011SE03388

PATIENT
  Age: 27385 Day
  Sex: Female

DRUGS (21)
  1. CARTIA XT [Concomitant]
     Dates: start: 20060907
  2. AMLODIPINE [Concomitant]
     Dates: start: 20101224, end: 20101225
  3. BISOPROLOL FUMARATE [Concomitant]
     Dates: start: 20101230
  4. FLUTICASONE PROPIONATE [Concomitant]
     Dates: start: 20101223, end: 20101229
  5. APIXABAN [Suspect]
     Indication: THROMBOSIS PROPHYLAXIS
     Route: 048
     Dates: start: 20101209, end: 20101223
  6. BISOPROLOL FUMARATE [Concomitant]
     Dates: start: 20101224
  7. LACTULOSE [Concomitant]
     Dates: start: 20101224
  8. APIXABAN [Suspect]
     Route: 048
     Dates: start: 20101224, end: 20110106
  9. FUSID [Concomitant]
     Dates: start: 20100829, end: 20101224
  10. FOSALAN [Concomitant]
     Dates: start: 20050726
  11. SINGULAIR [Concomitant]
     Dates: start: 20101215
  12. DERALIN [Concomitant]
     Dates: start: 20101210
  13. ROSUVASTATIN [Suspect]
     Route: 048
  14. ETODOLAC [Suspect]
     Route: 065
  15. PLACEBO [Suspect]
     Indication: THROMBOSIS PROPHYLAXIS
     Route: 065
     Dates: start: 20101209, end: 20101201
  16. AMLODIPINE [Concomitant]
     Dates: start: 20101215
  17. ENOXAPARIN [Suspect]
     Indication: THROMBOSIS PROPHYLAXIS
     Route: 058
     Dates: start: 20101209, end: 20101215
  18. AEROVENT [Concomitant]
     Dates: start: 20101223, end: 20101229
  19. STATIN [Concomitant]
  20. PRILOSEC [Concomitant]
     Dates: start: 20101210
  21. PREDNISONE [Concomitant]
     Dates: start: 20101214

REACTIONS (6)
  - URINARY TRACT INFECTION BACTERIAL [None]
  - LIVER FUNCTION TEST ABNORMAL [None]
  - CELLULITIS [None]
  - PERIPHERAL EMBOLISM [None]
  - CHOLELITHIASIS [None]
  - CHOLECYSTITIS [None]
